FAERS Safety Report 4451739-3 (Version None)
Quarter: 2004Q3

REPORT INFORMATION
  Report Type: 
  Country: None (occurrence: None)
  Receive Date: 20040915
  Receipt Date: 20040831
  Transmission Date: 20050211
  Serious: No
  Sender: FDA-Public Use
  Company Number: 04H-062-0272063-00

PATIENT
  Sex: 0

DRUGS (5)
  1. ETOMIDATE [Suspect]
     Dosage: TRANSPLACENTAL
     Route: 064
  2. PANCURONIUM [Concomitant]
  3. SUCCINYLCHOLINE CHLORIDE [Concomitant]
  4. NITROUS OXIDE [Concomitant]
  5. OXYGEN [Concomitant]

REACTIONS (2)
  - DRUG EXPOSURE DURING PREGNANCY [None]
  - HYPOGLYCAEMIA NEONATAL [None]
